FAERS Safety Report 13695675 (Version 1)
Quarter: 2017Q2

REPORT INFORMATION
  Report Type: Report from Study
  Country: IT (occurrence: IT)
  Receive Date: 20170627
  Receipt Date: 20170627
  Transmission Date: 20170830
  Serious: Yes (Other)
  Sender: FDA-Public Use
  Company Number: IT-MYLANLABS-2017M1037361

PATIENT

DRUGS (2)
  1. KETOROLAC [Suspect]
     Active Substance: KETOROLAC\KETOROLAC TROMETHAMINE
     Indication: HEADACHE
     Dosage: 10MG
     Route: 030
  2. KETOPROFEN. [Interacting]
     Active Substance: KETOPROFEN
     Indication: HEADACHE
     Dosage: 80MG
     Route: 048

REACTIONS (5)
  - Drug interaction [Unknown]
  - Rectal haemorrhage [Unknown]
  - Melaena [Unknown]
  - Off label use [Unknown]
  - Incorrect drug administration duration [Unknown]
